FAERS Safety Report 9990148 (Version 1)
Quarter: 2014Q1

REPORT INFORMATION
  Report Type: Report from Study
  Country: US (occurrence: US)
  Receive Date: 20140310
  Receipt Date: 20140310
  Transmission Date: 20141002
  Serious: No
  Sender: FDA-Public Use
  Company Number: US-ABBVIE-13P-163-1134529-00

PATIENT
  Age: 68 Year
  Sex: Female

DRUGS (3)
  1. HUMIRA [Suspect]
     Indication: RHEUMATOID ARTHRITIS
     Dates: start: 201211, end: 201301
  2. HUMIRA [Suspect]
     Dates: start: 201302, end: 201307
  3. HUMIRA [Suspect]
     Dates: start: 201307

REACTIONS (3)
  - Infection [Recovered/Resolved]
  - Joint swelling [Recovered/Resolved]
  - Rheumatoid arthritis [Recovered/Resolved]
